FAERS Safety Report 6986550-2 (Version None)
Quarter: 2010Q3

REPORT INFORMATION
  Report Type: 
  Country: None (occurrence: None)
  Receive Date: 20100915
  Receipt Date: 20090713
  Transmission Date: 20110219
  Serious: No
  Sender: FDA-Public Use
  Company Number: US-WYE-H10122309

PATIENT
  Sex: Female
  Weight: 66.28 kg

DRUGS (3)
  1. PRISTIQ [Suspect]
     Indication: DEPRESSION
     Route: 048
     Dates: start: 20090710, end: 20090712
  2. ADDERALL 10 [Concomitant]
  3. XANAX [Concomitant]

REACTIONS (1)
  - PARAESTHESIA [None]
